FAERS Safety Report 17763962 (Version 1)
Quarter: 2020Q2

REPORT INFORMATION
  Report Type: Spontaneous
  Country: CZ (occurrence: CZ)
  Receive Date: 20200510
  Receipt Date: 20200510
  Transmission Date: 20200714
  Serious: Yes (Other)
  Sender: FDA-Public Use
  Company Number: CZ-TEVA-2020-CZ-1233397

PATIENT
  Sex: Female

DRUGS (5)
  1. FOLINIC ACID [Suspect]
     Active Substance: LEUCOVORIN
     Indication: COLORECTAL CANCER
     Dosage: 2 CYCLES IN FOLFOX 4 REGIMEN
     Route: 042
     Dates: start: 20100209, end: 20100225
  2. FOLINIC ACID [Suspect]
     Active Substance: LEUCOVORIN
     Dosage: 10 CYCLES IN FOLFOX 4 REGIMEN
     Route: 042
     Dates: start: 20100816, end: 20110117
  3. OXALIPLATIN. [Suspect]
     Active Substance: OXALIPLATIN
     Indication: COLORECTAL CANCER
     Dosage: 2 CYCLES IN FOLFOX 4 REGIMEN
     Route: 042
     Dates: start: 20100209, end: 20100225
  4. OXALIPLATIN. [Suspect]
     Active Substance: OXALIPLATIN
     Dosage: 10 CYCLES IN FOLFOX 4 REGIMEN
     Route: 042
     Dates: start: 20100816, end: 20110117
  5. 5-FLUOROURACIL [Suspect]
     Active Substance: FLUOROURACIL
     Dates: start: 20100209, end: 20100225

REACTIONS (1)
  - Neutropenia [Not Recovered/Not Resolved]
